FAERS Safety Report 6521288-7 (Version None)
Quarter: 2009Q4

REPORT INFORMATION
  Report Type: 
  Country: None (occurrence: None)
  Receive Date: 20091224
  Receipt Date: 20091210
  Transmission Date: 20100525
  Serious: Yes (Other)
  Sender: FDA-Public Use
  Company Number: 1022556-2009-00245

PATIENT
  Sex: Female
  Weight: 54.4316 kg

DRUGS (3)
  1. UNISOM [Suspect]
     Indication: SLEEP DISORDER
     Dosage: 1 TABLET, ORAL, 2 SEPARATE NIGHTS
     Route: 048
  2. BLOOD PRESSURE MEDICATION [Concomitant]
  3. LOWMOTIL [Concomitant]

REACTIONS (4)
  - FALL [None]
  - HAEMORRHAGE [None]
  - HEAD INJURY [None]
  - SOMNAMBULISM [None]
